FAERS Safety Report 5473024-3 (Version None)
Quarter: 2007Q4

REPORT INFORMATION
  Report Type: 
  Country: None (occurrence: None)
  Receive Date: 20071001
  Receipt Date: 20070222
  Transmission Date: 20080405
  Serious: No
  Sender: FDA-Public Use
  Company Number: US-ASTRAZENECA-2007UW03456

PATIENT
  Age: 52 Year
  Sex: Female
  Weight: 63.5 kg

DRUGS (4)
  1. ARIMIDEX [Suspect]
     Indication: BREAST CANCER STAGE I
     Route: 048
     Dates: start: 20070101
  2. ZANTAC [Concomitant]
  3. LORTAC [Concomitant]
  4. MIGRAINE PILL [Concomitant]

REACTIONS (7)
  - GAIT DISTURBANCE [None]
  - HOT FLUSH [None]
  - JOINT SWELLING [None]
  - LYMPHOEDEMA [None]
  - MYALGIA [None]
  - PAIN IN EXTREMITY [None]
  - VOMITING [None]
